FAERS Safety Report 5627966-6 (Version None)
Quarter: 2008Q1

REPORT INFORMATION
  Report Type: 
  Country: None (occurrence: None)
  Receive Date: 20080215
  Receipt Date: 20080207
  Transmission Date: 20080703
  Serious: Yes (Life-Threatening)
  Sender: FDA-Public Use
  Company Number: GB-TEVA-167346ISR

PATIENT
  Age: 46 Year
  Sex: Female

DRUGS (1)
  1. VALPROIC ACID [Suspect]
     Indication: EPILEPSY
     Route: 048

REACTIONS (3)
  - FALL [None]
  - SUBDURAL HAEMATOMA [None]
  - THROMBOCYTOPENIA [None]
